FAERS Safety Report 10160122 (Version 2)
Quarter: 2014Q2

REPORT INFORMATION
  Report Type: Report from Study
  Country: ZA (occurrence: ZA)
  Receive Date: 20140508
  Receipt Date: 20140508
  Transmission Date: 20141212
  Serious: Yes (Hospitalization)
  Sender: FDA-Public Use
  Company Number: ZA-SA-200817827GDDC

PATIENT
  Age: 45 Year
  Sex: Male
  Weight: 52.2 kg

DRUGS (6)
  1. RIFAMPICIN [Suspect]
     Indication: PULMONARY TUBERCULOSIS
     Dosage: DOSE AS USED: UNK
     Route: 065
     Dates: start: 20080403
  2. ISONIAZID [Suspect]
     Indication: PULMONARY TUBERCULOSIS
     Dosage: DOSE AS USED: UNK
     Route: 065
     Dates: start: 20080403
  3. PYRAZINAMIDE [Suspect]
     Indication: PULMONARY TUBERCULOSIS
     Dosage: DOSE AS USED: UNK
     Route: 065
     Dates: start: 20080403
  4. ETHAMBUTOL [Suspect]
     Indication: PULMONARY TUBERCULOSIS
     Dosage: DOSE AS USED: UNK
     Route: 065
     Dates: start: 20080403
  5. BLINDED THERAPY [Suspect]
     Indication: PULMONARY TUBERCULOSIS
     Dosage: DOSE AS USED: UNK
     Route: 065
     Dates: start: 20080403
  6. NO MENTION OF CONCOMITANT DRUGS [Concomitant]

REACTIONS (1)
  - Convulsion [Recovered/Resolved]
